FAERS Safety Report 11025500 (Version 2)
Quarter: 2015Q4

REPORT INFORMATION
  Report Type: Spontaneous
  Country: US (occurrence: US)
  Receive Date: 20150414
  Receipt Date: 20151009
  Transmission Date: 20160304
  Serious: Yes (Hospitalization)
  Sender: FDA-Public Use
  Company Number: US-PFIZER INC-2015120292

PATIENT
  Age: 59 Year
  Sex: Female
  Weight: 70 kg

DRUGS (2)
  1. XALKORI [Suspect]
     Active Substance: CRIZOTINIB
     Indication: LUNG NEOPLASM MALIGNANT
     Dosage: 250 MG, 2X/DAY (1 CAP TWICE DAILY)
     Route: 048
     Dates: start: 20150305
  2. XALKORI [Suspect]
     Active Substance: CRIZOTINIB
     Dosage: UNK
     Route: 048
     Dates: start: 20150924

REACTIONS (10)
  - Nausea [Unknown]
  - Cough [Unknown]
  - Abdominal distension [Unknown]
  - Pneumonia [Unknown]
  - Dizziness [Unknown]
  - Wheezing [Unknown]
  - Visual impairment [Unknown]
  - Dyspnoea [Unknown]
  - Chills [Unknown]
  - Weight fluctuation [Unknown]

NARRATIVE: CASE EVENT DATE: 2015
